FAERS Safety Report 7900358-2 (Version None)
Quarter: 2011Q4

REPORT INFORMATION
  Report Type: 
  Country: None (occurrence: None)
  Receive Date: 20111108
  Receipt Date: 20111101
  Transmission Date: 20120403
  Serious: Yes (Hospitalization, Disabling, Other)
  Sender: FDA-Public Use
  Company Number: US-PFIZER INC-2011214577

PATIENT
  Sex: Male

DRUGS (2)
  1. ZYVOX [Suspect]
     Indication: SINUSITIS BACTERIAL
     Dosage: 600 MG, 2X/DAY
     Route: 048
     Dates: start: 20100207, end: 20110222
  2. ZYVOX [Suspect]
     Indication: ANTIBIOTIC RESISTANT STAPHYLOCOCCUS TEST

REACTIONS (3)
  - OPTIC NEUROPATHY [None]
  - VISION BLURRED [None]
  - ACCOMMODATION DISORDER [None]
